FAERS Safety Report 11219737 (Version 2)
Quarter: 2015Q3

REPORT INFORMATION
  Report Type: Spontaneous
  Country: US (occurrence: US)
  Receive Date: 20150625
  Receipt Date: 20150728
  Transmission Date: 20151125
  Serious: Yes (Death, Hospitalization)
  Sender: FDA-Public Use
  Company Number: US-JNJFOC-20150617916

PATIENT
  Sex: Female

DRUGS (11)
  1. ACETAMINOPHEN. [Concomitant]
     Active Substance: ACETAMINOPHEN
  2. ONDANSETRON [Concomitant]
     Active Substance: ONDANSETRON
  3. FUROSEMIDE. [Concomitant]
     Active Substance: FUROSEMIDE
  4. OXYCODONE [Concomitant]
     Active Substance: OXYCODONE
  5. PREDNISONE. [Concomitant]
     Active Substance: PREDNISONE
  6. IMBRUVICA [Suspect]
     Active Substance: IBRUTINIB
     Indication: MANTLE CELL LYMPHOMA
     Route: 048
     Dates: start: 20150515
  7. ALBUTEROL. [Concomitant]
     Active Substance: ALBUTEROL
  8. NITROGLYCERINE [Concomitant]
     Active Substance: NITROGLYCERIN
  9. OMEPRAZOLE. [Concomitant]
     Active Substance: OMEPRAZOLE
  10. WARFARIN [Concomitant]
     Active Substance: WARFARIN
  11. ALLOPURINOL. [Concomitant]
     Active Substance: ALLOPURINOL

REACTIONS (2)
  - Disease progression [Fatal]
  - Septic shock [Fatal]
